FAERS Safety Report 11192417 (Version 3)
Quarter: 2015Q3

REPORT INFORMATION
  Report Type: Spontaneous
  Country: TR (occurrence: TR)
  Receive Date: 20150616
  Receipt Date: 20150827
  Transmission Date: 20151125
  Serious: Yes (Death, Other)
  Sender: FDA-Public Use
  Company Number: TR-PFIZER INC-2015199359

PATIENT
  Age: 50 Year
  Sex: Male

DRUGS (2)
  1. ETOPOSIDE. [Concomitant]
     Active Substance: ETOPOSIDE
     Indication: LUNG CANCER METASTATIC
  2. XALKORI [Suspect]
     Active Substance: CRIZOTINIB
     Indication: LUNG CANCER METASTATIC
     Dosage: UNK
     Dates: start: 201312

REACTIONS (3)
  - Small cell lung cancer [Unknown]
  - Febrile neutropenia [Fatal]
  - Second primary malignancy [Unknown]
